FAERS Safety Report 6439151-9 (Version None)
Quarter: 2009Q4

REPORT INFORMATION
  Report Type: 
  Country: None (occurrence: None)
  Receive Date: 20091110
  Receipt Date: 20091026
  Transmission Date: 20100525
  Serious: Yes (Hospitalization, Other)
  Sender: FDA-Public Use
  Company Number: 2009AC000260

PATIENT
  Age: 30 Year
  Sex: Female

DRUGS (10)
  1. DIGOXIN [Suspect]
     Dates: start: 19990101
  2. K-DUR [Concomitant]
  3. LASIX [Concomitant]
  4. ASPIRIN [Concomitant]
  5. SPIRONOLACTONE [Concomitant]
  6. MIRTAZAPINE [Concomitant]
  7. VASOTEC [Concomitant]
  8. CATAPRES [Concomitant]
  9. TOROL XL [Concomitant]
  10. LOTENSIN [Concomitant]

REACTIONS (9)
  - ANAEMIA [None]
  - CARDIAC FAILURE CONGESTIVE [None]
  - CARDIOMYOPATHY [None]
  - CHEST DISCOMFORT [None]
  - ECONOMIC PROBLEM [None]
  - HEMIPARESIS [None]
  - ILL-DEFINED DISORDER [None]
  - SURGERY [None]
  - TRANSIENT ISCHAEMIC ATTACK [None]
